FAERS Safety Report 16859464 (Version 2)
Quarter: 2019Q4

REPORT INFORMATION
  Report Type: Spontaneous
  Country: JP (occurrence: JP)
  Receive Date: 20190927
  Receipt Date: 20191011
  Transmission Date: 20200122
  Serious: Yes (Other)
  Sender: FDA-Public Use
  Company Number: JP-SA-2019SA266259

PATIENT
  Age: 80 Year
  Sex: Female

DRUGS (1)
  1. DOCETAXEL. [Suspect]
     Active Substance: DOCETAXEL
     Indication: LUNG NEOPLASM MALIGNANT
     Route: 041

REACTIONS (6)
  - Rash [Recovered/Resolved]
  - Subcutaneous abscess [Unknown]
  - Parakeratosis [Unknown]
  - Biopsy skin abnormal [Unknown]
  - Psoriasis [Unknown]
  - Skin exfoliation [Unknown]
